FAERS Safety Report 10070756 (Version 1)
Quarter: 2014Q2

REPORT INFORMATION
  Report Type: Spontaneous
  Country: US (occurrence: US)
  Receive Date: 20140410
  Receipt Date: 20140410
  Transmission Date: 20141212
  Serious: No
  Sender: FDA-Public Use
  Company Number: US-PFIZER INC-2014097021

PATIENT
  Age: 17 Year
  Sex: Male
  Weight: 83.45 kg

DRUGS (3)
  1. ADVIL [Suspect]
     Indication: MYALGIA
     Dosage: UNK
  2. ADVIL [Suspect]
     Dosage: 600 MG, ONCE (REPORTED AS TOOK THREE LIQUID GELS OF 200MG EACH TOGETHER)
     Dates: start: 20140403
  3. AMOXICILLIN [Concomitant]
     Indication: NASOPHARYNGITIS
     Dosage: UNK

REACTIONS (2)
  - Extra dose administered [Unknown]
  - Dizziness [Unknown]
